FAERS Safety Report 5212151-2 (Version None)
Quarter: 2007Q1

REPORT INFORMATION
  Report Type: 
  Country: None (occurrence: None)
  Receive Date: 20070118
  Receipt Date: 20070108
  Transmission Date: 20070707
  Serious: Yes (Hospitalization)
  Sender: FDA-Public Use
  Company Number: GR-ABBOTT-06P-066-0328834-00

PATIENT
  Sex: Male
  Weight: 68 kg

DRUGS (5)
  1. HUMIRA [Suspect]
     Indication: RHEUMATOID ARTHRITIS
     Route: 058
     Dates: start: 20050613, end: 20060127
  2. PARACETAMOL [Concomitant]
     Indication: RHEUMATOID ARTHRITIS
     Dates: start: 20060201
  3. METHOTREXATE [Concomitant]
     Indication: ARTHRITIS
     Dates: start: 20041201
  4. CALCIUM [Concomitant]
     Indication: OSTEOPOROSIS PROPHYLAXIS
     Dates: start: 20050601
  5. PREDNISONE [Concomitant]
     Indication: RHEUMATOID ARTHRITIS

REACTIONS (1)
  - MONONEUROPATHY MULTIPLEX [None]
